FAERS Safety Report 20022298 (Version 4)
Quarter: 2022Q1

REPORT INFORMATION
  Report Type: Report from Study
  Country: US (occurrence: None)
  Receive Date: 20211102
  Receipt Date: 20220131
  Transmission Date: 20220423
  Serious: Yes (Life-Threatening, Other)
  Sender: FDA-Public Use
  Company Number: US-ROCHE-2944180

PATIENT
  Weight: 76.272 kg

DRUGS (4)
  1. ATEZOLIZUMAB [Suspect]
     Active Substance: ATEZOLIZUMAB
     Indication: Plasma cell myeloma
     Route: 041
  2. ATEZOLIZUMAB [Suspect]
     Active Substance: ATEZOLIZUMAB
     Route: 041
  3. TALAZOPARIB [Suspect]
     Active Substance: TALAZOPARIB
     Indication: Plasma cell myeloma
     Route: 048
  4. TALAZOPARIB [Suspect]
     Active Substance: TALAZOPARIB
     Route: 048

REACTIONS (2)
  - Platelet count decreased [Recovered/Resolved]
  - Anaemia [Not Recovered/Not Resolved]

NARRATIVE: CASE EVENT DATE: 20210910
